FAERS Safety Report 9853062 (Version 1)
Quarter: 2014Q1

REPORT INFORMATION
  Report Type: Spontaneous
  Country: US (occurrence: None)
  Receive Date: 20140128
  Receipt Date: 20140128
  Transmission Date: 20141002
  Serious: Yes (Hospitalization)
  Sender: FDA-Public Use
  Company Number: None

PATIENT
  Age: 17 Year
  Sex: Female
  Weight: 110 kg

DRUGS (1)
  1. SPRINTEC [Suspect]
     Indication: ORAL CONTRACEPTION
     Route: 048
     Dates: start: 20131010, end: 20140110

REACTIONS (7)
  - Deep vein thrombosis [None]
  - Deep vein thrombosis [None]
  - Deep vein thrombosis [None]
  - Back pain [None]
  - Dyspnoea [None]
  - Hyperhidrosis [None]
  - Abdominal discomfort [None]
